FAERS Safety Report 4385708-9 (Version None)
Quarter: 2004Q2

REPORT INFORMATION
  Report Type: 
  Country: None (occurrence: None)
  Receive Date: 20040625
  Receipt Date: 20040625
  Transmission Date: 20050107
  Serious: Yes (Hospitalization)
  Sender: FDA-Public Use
  Company Number: None

PATIENT
  Age: 63 Year
  Sex: Female
  Weight: 83.9154 kg

DRUGS (3)
  1. WARFARIN SODIUM [Suspect]
     Dates: start: 20040407, end: 20040408
  2. METHOTREXATE [Suspect]
     Indication: GASTRIC CANCER
     Dosage: PRIOR TO ADMIT
  3. METHOTREXATE [Suspect]
     Indication: METASTASIS
     Dosage: PRIOR TO ADMIT

REACTIONS (6)
  - DRUG TOXICITY [None]
  - MOUTH HAEMORRHAGE [None]
  - NAUSEA [None]
  - OEDEMA [None]
  - RENAL FAILURE ACUTE [None]
  - STOMATITIS [None]
